FAERS Safety Report 23441873 (Version 2)
Quarter: 2024Q1

REPORT INFORMATION
  Report Type: Spontaneous
  Country: US (occurrence: None)
  Receive Date: 20240125
  Receipt Date: 20240206
  Transmission Date: 20240410
  Serious: No
  Sender: FDA-Public Use
  Company Number: 2024A013564

PATIENT
  Age: 592 Month
  Sex: Male

DRUGS (2)
  1. BYDUREON BCISE [Suspect]
     Active Substance: EXENATIDE
     Dosage: UNKNOWN
  2. BYDUREON BCISE [Suspect]
     Active Substance: EXENATIDE
     Dates: start: 20240107

REACTIONS (5)
  - Lacrimation increased [Unknown]
  - Gastritis [Unknown]
  - Cholelithiasis [Unknown]
  - Product dose omission issue [Unknown]
  - Device delivery system issue [Unknown]

NARRATIVE: CASE EVENT DATE: 20230201
